FAERS Safety Report 8133801-7 (Version None)
Quarter: 2012Q1

REPORT INFORMATION
  Report Type: 
  Country: None (occurrence: None)
  Receive Date: 20120213
  Receipt Date: 20120213
  Transmission Date: 20120608
  Serious: Yes (Hospitalization)
  Sender: FDA-Public Use
  Company Number: None

PATIENT
  Age: 44 Year
  Sex: Female
  Weight: 57.152 kg

DRUGS (2)
  1. LORAZEPAM [Concomitant]
  2. METOCLOPRAMIDE [Suspect]
     Indication: NAUSEA
     Dosage: IV AT HOSPITAL
     Route: 041
     Dates: start: 20111219, end: 20111220

REACTIONS (6)
  - DYSTONIA [None]
  - PALPITATIONS [None]
  - TREMOR [None]
  - AKATHISIA [None]
  - ANXIETY [None]
  - CONVULSION [None]
